FAERS Safety Report 6235062-2 (Version None)
Quarter: 2009Q2

REPORT INFORMATION
  Report Type: 
  Country: None (occurrence: None)
  Receive Date: 20090618
  Receipt Date: 20090609
  Transmission Date: 20091009
  Serious: No
  Sender: FDA-Public Use
  Company Number: PHEH2009US05994

PATIENT
  Sex: Female

DRUGS (10)
  1. TASIGNA [Suspect]
     Indication: CHRONIC MYELOID LEUKAEMIA
     Dosage: 400 MG, Q12H
     Route: 048
     Dates: start: 20080901
  2. DIOVAN HCT [Concomitant]
  3. ADVAIR HFA [Concomitant]
  4. PREVACID [Concomitant]
  5. CYMBALTA [Concomitant]
  6. ALLEGRA D 24 HOUR [Concomitant]
  7. ALLOPURINOL [Concomitant]
  8. ASPIRIN [Concomitant]
  9. OXYCODONE HCL [Concomitant]
  10. IBUPROFEN [Concomitant]

REACTIONS (1)
  - MEDICATION ERROR [None]
